FAERS Safety Report 14599918 (Version 1)
Quarter: 2018Q1

REPORT INFORMATION
  Report Type: Report from Study
  Country: HR (occurrence: HR)
  Receive Date: 20180305
  Receipt Date: 20180305
  Transmission Date: 20180509
  Serious: Yes (Death, Life-Threatening, Other)
  Sender: FDA-Public Use
  Company Number: PHHY2018HR032609

PATIENT
  Age: 61 Year
  Sex: Male
  Weight: 84 kg

DRUGS (2)
  1. FLUDARABINE [Suspect]
     Active Substance: FLUDARABINE PHOSPHATE
     Indication: BONE MARROW CONDITIONING REGIMEN
     Dosage: 69 MG, QD
     Route: 042
     Dates: start: 20160401, end: 20160403
  2. DECITABINE. [Suspect]
     Active Substance: DECITABINE
     Indication: ACUTE MYELOID LEUKAEMIA
     Dosage: 39 MG, QD FOR 10 DAYS
     Route: 042
     Dates: start: 20170325, end: 20170403

REACTIONS (26)
  - Graft versus host disease in skin [Unknown]
  - Anuria [Unknown]
  - Diarrhoea [Unknown]
  - Fungal infection [Unknown]
  - Multiple organ dysfunction syndrome [Fatal]
  - Neutropenic colitis [Fatal]
  - Hypotension [Unknown]
  - Acute kidney injury [Unknown]
  - Respiratory failure [Unknown]
  - Rash macular [Unknown]
  - Fluid retention [Unknown]
  - Pseudomonas infection [Unknown]
  - Klebsiella infection [Unknown]
  - Abdominal distension [Unknown]
  - Respiratory alkalosis [Unknown]
  - Septic shock [Fatal]
  - Febrile neutropenia [Unknown]
  - Pneumonia [Unknown]
  - Lactic acidosis [Unknown]
  - Ileus paralytic [Unknown]
  - Gastrointestinal injury [Unknown]
  - Pulmonary mass [Unknown]
  - Oliguria [Unknown]
  - Bronchospasm [Recovered/Resolved]
  - Enterococcal infection [Unknown]
  - Dyspnoea [Unknown]

NARRATIVE: CASE EVENT DATE: 201704
